FAERS Safety Report 8592300-9 (Version None)
Quarter: 2012Q3

REPORT INFORMATION
  Report Type: 
  Country: None (occurrence: None)
  Receive Date: 20120814
  Receipt Date: 20120726
  Transmission Date: 20120928
  Serious: No
  Sender: FDA-Public Use
  Company Number: US-BAYER-2012-076110

PATIENT
  Sex: Male

DRUGS (1)
  1. MIRENA [Suspect]
     Route: 003

REACTIONS (1)
  - PENILE PAIN [None]
